FAERS Safety Report 8624405-8 (Version None)
Quarter: 2012Q3

REPORT INFORMATION
  Report Type: 
  Country: None (occurrence: None)
  Receive Date: 20120827
  Receipt Date: 20120820
  Transmission Date: 20120928
  Serious: Yes (Hospitalization, Other)
  Sender: FDA-Public Use
  Company Number: PHHY2011JP93809

PATIENT
  Sex: Male

DRUGS (17)
  1. ZOMETA [Suspect]
     Indication: METASTASES TO BONE
     Dosage: 4 MG, UNK
     Route: 041
     Dates: start: 20090526, end: 20090526
  2. AFINITOR [Suspect]
     Indication: METASTATIC RENAL CELL CARCINOMA
     Dosage: 10 MG, DAILY
     Route: 048
     Dates: start: 20110318, end: 20110701
  3. AFINITOR [Suspect]
     Dosage: 10 MG, DAILY
     Route: 048
     Dates: start: 20110905, end: 20120112
  4. SORAFENIB TOSILATE [Concomitant]
     Indication: METASTATIC RENAL CELL CARCINOMA
     Dosage: 800 MG, UNK
     Route: 048
     Dates: start: 20090518, end: 20110103
  5. FAMOTIDINE [Concomitant]
     Indication: METASTATIC RENAL CELL CARCINOMA
     Dosage: 20 MG, UNK
     Route: 048
     Dates: start: 20110318, end: 20110407
  6. LYRICA [Concomitant]
     Indication: METASTATIC RENAL CELL CARCINOMA
     Dosage: 150 MG, UNK
     Route: 048
     Dates: start: 20110702
  7. TRAMADOL HYDROCHLORIDE [Concomitant]
     Indication: METASTATIC RENAL CELL CARCINOMA
     Dosage: 100 MG, UNK
     Route: 048
     Dates: start: 20111031, end: 20111201
  8. OXYCONTIN [Concomitant]
     Indication: METASTATIC RENAL CELL CARCINOMA
     Dosage: 10 MG, UNK
     Route: 048
     Dates: start: 20111202
  9. PROCHLORPERAZINE [Concomitant]
     Indication: METASTATIC RENAL CELL CARCINOMA
     Dosage: 15 MG, UNK
     Route: 048
     Dates: start: 20111031
  10. HACHIAZULE [Concomitant]
     Indication: PROPHYLAXIS
     Dosage: 6 G, UNK
     Route: 048
     Dates: start: 20110702
  11. ZOMETA [Suspect]
     Dosage: 4 MG, UNK
     Route: 041
     Dates: start: 20110131, end: 20110131
  12. AFINITOR [Suspect]
     Dosage: 5 MG, DAILY
     Route: 048
     Dates: start: 20110805, end: 20110904
  13. SUNITINIB MALATE [Concomitant]
     Indication: METASTATIC RENAL CELL CARCINOMA
     Dosage: 50 MG, UNK
     Route: 048
     Dates: start: 20110107, end: 20110203
  14. ACETAMINOPHEN [Concomitant]
     Indication: METASTATIC RENAL CELL CARCINOMA
     Dosage: 1800 MG, UNK
     Route: 048
     Dates: start: 20110318
  15. NEUROTROPIN [Concomitant]
     Indication: METASTATIC RENAL CELL CARCINOMA
     Dosage: 16 IU, UNK
     Route: 048
     Dates: start: 20110702
  16. CLARITHROMYCIN [Concomitant]
     Indication: METASTATIC RENAL CELL CARCINOMA
     Dosage: 400 MG, DAILY
     Route: 048
     Dates: start: 20110704, end: 20111003
  17. ONEALFA [Concomitant]
     Indication: METASTATIC RENAL CELL CARCINOMA
     Dosage: 0.25 UG, UNK
     Route: 048
     Dates: start: 20110702

REACTIONS (4)
  - NEOPLASM MALIGNANT [None]
  - NEOPLASM PROGRESSION [None]
  - OSTEOMYELITIS [None]
  - OSTEONECROSIS OF JAW [None]
